FAERS Safety Report 17423778 (Version 1)
Quarter: 2020Q1

REPORT INFORMATION
  Report Type: Spontaneous
  Country: KR (occurrence: KR)
  Receive Date: 20200217
  Receipt Date: 20200217
  Transmission Date: 20200409
  Serious: Yes (Life-Threatening, Hospitalization, Other)
  Sender: FDA-Public Use
  Company Number: KR-PIRAMAL ENTERPRISES LIMITED-2020-PEL-000050

PATIENT
  Age: 65 Year
  Sex: Female
  Weight: 50 kg

DRUGS (9)
  1. PROPOFOL. [Suspect]
     Active Substance: PROPOFOL
     Indication: INDUCTION OF ANAESTHESIA
     Dosage: 1 MG/KG
     Route: 065
  2. REMIFENTANIL [Suspect]
     Active Substance: REMIFENTANIL
     Indication: MAINTENANCE OF ANAESTHESIA
     Dosage: 0.1?0.5 ?G/KG/H
     Route: 065
  3. CARBIDOPA/LEVODOPA [Concomitant]
     Active Substance: CARBIDOPA\LEVODOPA
     Dosage: UNK
     Route: 065
  4. CARBIDOPA/LEVODOPA [Concomitant]
     Active Substance: CARBIDOPA\LEVODOPA
     Indication: PARKINSON^S DISEASE
     Dosage: UNK
     Route: 065
  5. PYRIDOSTIGMINE [Concomitant]
     Active Substance: PYRIDOSTIGMINE
     Indication: NEUROMUSCULAR BLOCKADE REVERSAL
     Dosage: 0.25 MG/KG
     Route: 065
  6. GLYCOPYRROLATE                     /00196201/ [Concomitant]
     Active Substance: GLYCOPYRRONIUM
     Indication: NEUROMUSCULAR BLOCKADE REVERSAL
     Dosage: 0.008 MG/KG
     Route: 065
  7. REMIFENTANIL [Suspect]
     Active Substance: REMIFENTANIL
     Indication: INDUCTION OF ANAESTHESIA
     Dosage: UNK
     Route: 065
  8. SEVOFLURANE. [Suspect]
     Active Substance: SEVOFLURANE
     Indication: MAINTENANCE OF ANAESTHESIA
     Dosage: UNK
  9. ROCURONIUM BROMIDE. [Concomitant]
     Active Substance: ROCURONIUM BROMIDE
     Indication: PRODUCT USED FOR UNKNOWN INDICATION
     Dosage: 0.8 MG/KG
     Route: 065

REACTIONS (2)
  - Respiratory failure [Recovered/Resolved]
  - Vocal cord paralysis [Not Recovered/Not Resolved]
